FAERS Safety Report 22133519 (Version 1)
Quarter: 2023Q1

REPORT INFORMATION
  Report Type: Spontaneous
  Country: IN (occurrence: IN)
  Receive Date: 20230324
  Receipt Date: 20230324
  Transmission Date: 20230417
  Serious: Yes (Hospitalization, Other)
  Sender: FDA-Public Use
  Company Number: IN-CIPLA LTD.-2023IN01559

PATIENT

DRUGS (2)
  1. PREGABALIN [Suspect]
     Active Substance: PREGABALIN
     Indication: Back pain
     Dosage: UNK
     Route: 048
  2. PREGABALIN [Suspect]
     Active Substance: PREGABALIN
     Dosage: 15 CAPSULES PER DAY
     Route: 048

REACTIONS (12)
  - Hypoaesthesia [Recovering/Resolving]
  - Irritability [Recovering/Resolving]
  - Palpitations [Recovering/Resolving]
  - Tremor [Recovering/Resolving]
  - Drug abuse [Unknown]
  - Drug dependence [Unknown]
  - Drug withdrawal syndrome [Recovering/Resolving]
  - Headache [Recovering/Resolving]
  - Energy increased [Unknown]
  - Job dissatisfaction [Unknown]
  - Social problem [Unknown]
  - Euphoric mood [Unknown]
